FAERS Safety Report 7689520-4 (Version None)
Quarter: 2011Q3

REPORT INFORMATION
  Report Type: 
  Country: None (occurrence: None)
  Receive Date: 20110817
  Receipt Date: 20110809
  Transmission Date: 20111222
  Serious: Yes (Other)
  Sender: FDA-Public Use
  Company Number: US-TYCO HEALTHCARE/MALLINCKRODT-T201101571

PATIENT
  Sex: Female
  Weight: 49.887 kg

DRUGS (1)
  1. FENTANYL-100 [Suspect]
     Indication: PAIN
     Dosage: 100 UG/HR, UNK
     Dates: start: 20110701

REACTIONS (3)
  - DYSPNOEA [None]
  - GASTROINTESTINAL DISORDER [None]
  - OVERDOSE [None]
